FAERS Safety Report 9512471 (Version 2)
Quarter: 2014Q1

REPORT INFORMATION
  Report Type: Spontaneous
  Country: US (occurrence: None)
  Receive Date: 20130305
  Receipt Date: 20140306
  Transmission Date: 20141002
  Serious: Yes (Other)
  Sender: FDA-Public Use
  Company Number: 163-21880-12103206

PATIENT
  Age: 66 Year
  Sex: Female

DRUGS (14)
  1. REVLIMID [Suspect]
     Indication: PLASMA CELL MYELOMA
     Dosage: 1 IN 1 D
     Route: 048
     Dates: start: 200908, end: 2009
  2. ACYCLOVIR (ACYCLOVIR) (UNKNOWN) [Concomitant]
  3. FOSAMAX (ALENDRONATE SODIUM) [Concomitant]
  4. LORATADINE [Concomitant]
  5. VITAMIN D3 (COLECALCIFEROL) [Concomitant]
  6. FOLIC ACID [Concomitant]
  7. MULTIVITAMINS [Concomitant]
  8. VITAMIN C (ASCORBIC ACID) [Concomitant]
  9. SELENIUM [Concomitant]
  10. MAGNESIUM [Concomitant]
  11. VITAMIN E (TOCOPHEROL) [Concomitant]
  12. ASPIRINE EC (ACETYLSALICYLIC ACID) [Concomitant]
  13. PROBIOTICS [Concomitant]
  14. BONIVA (IBANDRONATE SODIUM) [Concomitant]

REACTIONS (10)
  - Muscle spasms [None]
  - Dry skin [None]
  - White blood cell count decreased [None]
  - Skin exfoliation [None]
  - Constipation [None]
  - Diarrhoea [None]
  - Flatulence [None]
  - Neuralgia [None]
  - Muscle spasms [None]
  - Rash [None]
